FAERS Safety Report 5995087-9 (Version None)
Quarter: 2008Q4

REPORT INFORMATION
  Report Type: 
  Country: None (occurrence: None)
  Receive Date: 20081210
  Receipt Date: 20081125
  Transmission Date: 20090506
  Serious: Yes (Hospitalization)
  Sender: FDA-Public Use
  Company Number: 2008S1021127

PATIENT
  Age: 44 Year
  Sex: Female

DRUGS (13)
  1. CITALOPRAM HYDROBROMIDE [Suspect]
     Indication: DEPRESSION
     Dosage: 20 MG; DAILY;
  2. METHYLTHIONINIUM CHLORIDE (METHYLTHIONINIUM CHLORIDE) [Suspect]
     Dosage: 500 MG; INTRAVENOUS DRIP
     Route: 041
  3. ASPIRIN [Concomitant]
  4. SIMVASTATIN [Concomitant]
  5. ATENOLOL [Concomitant]
  6. ISOSORBIDE MONONITRATE [Concomitant]
  7. BENDROFLUMETHIAZIDE [Concomitant]
  8. FELODIPINE [Concomitant]
  9. PROPOFOL [Concomitant]
  10. REMIFENTANIL [Concomitant]
  11. ROCURONIUM BROMIDE [Concomitant]
  12. DEXAMETHASONE [Concomitant]
  13. MORPHINE [Concomitant]

REACTIONS (5)
  - DRUG TOXICITY [None]
  - HYPERPARATHYROIDISM PRIMARY [None]
  - MYDRIASIS [None]
  - PUPILLARY REFLEX IMPAIRED [None]
  - SEROTONIN SYNDROME [None]
